FAERS Safety Report 13139318 (Version 2)
Quarter: 2017Q1

REPORT INFORMATION
  Report Type: Report from Study
  Country: US (occurrence: US)
  Receive Date: 20170123
  Receipt Date: 20170126
  Transmission Date: 20170428
  Serious: Yes (Hospitalization)
  Sender: FDA-Public Use
  Company Number: US-VERTEX PHARMACEUTICALS-2016-005836

PATIENT
  Age: 15 Year
  Sex: Female

DRUGS (1)
  1. ORKAMBI [Suspect]
     Active Substance: IVACAFTOR\LUMACAFTOR
     Indication: CYSTIC FIBROSIS
     Dosage: 2 DF (200/125MG EACH), BID
     Route: 048
     Dates: start: 20161005

REACTIONS (6)
  - Renal disorder [Not Recovered/Not Resolved]
  - Splenomegaly [Recovering/Resolving]
  - Epigastric discomfort [Unknown]
  - Staphylococcal infection [Unknown]
  - Infective pulmonary exacerbation of cystic fibrosis [Not Recovered/Not Resolved]
  - Hepatomegaly [Recovering/Resolving]

NARRATIVE: CASE EVENT DATE: 201610
